FAERS Safety Report 6268543-6 (Version None)
Quarter: 2009Q3

REPORT INFORMATION
  Report Type: 
  Country: None (occurrence: None)
  Receive Date: 20090715
  Receipt Date: 20090709
  Transmission Date: 20100115
  Serious: Yes (Hospitalization)
  Sender: FDA-Public Use
  Company Number: CA-BRISTOL-MYERS SQUIBB COMPANY-14698047

PATIENT
  Age: 58 Year
  Sex: Male

DRUGS (2)
  1. ARIPIPRAZOLE [Suspect]
     Dosage: NO OF COURSES = 4
     Route: 048
     Dates: start: 20090609, end: 20090708
  2. TUMS [Concomitant]
     Dates: start: 20060101

REACTIONS (1)
  - HALLUCINATION, VISUAL [None]
